FAERS Safety Report 8680210 (Version 4)
Quarter: 2013Q2

REPORT INFORMATION
  Report Type: Spontaneous
  Country: US (occurrence: US)
  Receive Date: 20120724
  Receipt Date: 20130419
  Transmission Date: 20140414
  Serious: Yes (Hospitalization, Other)
  Sender: FDA-Public Use
  Company Number: US-B.I. PHARMACEUTICALS,INC./RIDGEFIELD-2012-BP-16087BP

PATIENT
  Age: 68 Year
  Sex: Female
  Weight: 99.97 kg

DRUGS (16)
  1. PRADAXA [Suspect]
     Indication: ATRIAL FIBRILLATION
     Dosage: 300 MG
     Route: 048
     Dates: start: 201012, end: 201112
  2. SIMVASTATIN [Concomitant]
     Dosage: 40 MG
     Route: 048
  3. CARVEDILOL [Concomitant]
     Dosage: 25 MG
     Route: 048
  4. ZOLPIDEM [Concomitant]
  5. ALLOPURINOL [Concomitant]
     Dosage: 100 MG
     Route: 048
  6. FUROSEMIDE [Concomitant]
     Indication: CARDIAC FAILURE CONGESTIVE
     Dosage: 40 MG
     Route: 048
  7. HYDRALAZINE [Concomitant]
     Dosage: 50 MG
     Route: 048
  8. ASPIRIN [Concomitant]
     Dosage: 81 MG
     Route: 048
  9. METOCLOPRAMIDE [Concomitant]
     Indication: NAUSEA
     Route: 048
  10. METOCLOPRAMIDE [Concomitant]
     Indication: VOMITING
  11. DIOVAN [Concomitant]
  12. AMBIEN [Concomitant]
  13. FERROUS SULFATE [Concomitant]
  14. ZEMPLAR [Concomitant]
     Dosage: 1 MG
  15. PRILOSEC [Concomitant]
     Dosage: 20 MG
  16. METOLAZONE [Concomitant]

REACTIONS (5)
  - Haemorrhagic stroke [Unknown]
  - Thalamus haemorrhage [Unknown]
  - Subarachnoid haemorrhage [Unknown]
  - Intraventricular haemorrhage [Unknown]
  - Rectal haemorrhage [Unknown]
